FAERS Safety Report 12178227 (Version 1)
Quarter: 2016Q1

REPORT INFORMATION
  Report Type: Spontaneous
  Country: KR (occurrence: KR)
  Receive Date: 20160315
  Receipt Date: 20160315
  Transmission Date: 20160526
  Serious: Yes (Other)
  Sender: FDA-Public Use
  Company Number: KR-BAYER-2016-042986

PATIENT
  Age: 17 Year
  Sex: Male

DRUGS (1)
  1. CIPROFLOXACIN. [Suspect]
     Active Substance: CIPROFLOXACIN
     Indication: PERICARDITIS INFECTIVE

REACTIONS (2)
  - Pneumopericardium [None]
  - Drug ineffective [None]
